FAERS Safety Report 7062410-6 (Version None)
Quarter: 2010Q4

REPORT INFORMATION
  Report Type: 
  Country: None (occurrence: None)
  Receive Date: 20101026
  Receipt Date: 20091028
  Transmission Date: 20110411
  Serious: No
  Sender: FDA-Public Use
  Company Number: US-PFIZER INC-2009291852

PATIENT
  Sex: Female
  Weight: 75.3 kg

DRUGS (5)
  1. LIPITOR [Suspect]
     Indication: BLOOD CHOLESTEROL INCREASED
     Dosage: 20 MG, 1X/DAY
     Route: 048
     Dates: start: 20091001, end: 20091028
  2. WARFARIN [Concomitant]
  3. LISINOPRIL [Concomitant]
     Indication: HYPERTENSION
  4. LORAZEPAM [Concomitant]
  5. ACETAMINOPHEN [Concomitant]

REACTIONS (3)
  - BURNING SENSATION [None]
  - INSOMNIA [None]
  - MYALGIA [None]
